FAERS Safety Report 23488394 (Version 2)
Quarter: 2024Q1

REPORT INFORMATION
  Report Type: Spontaneous
  Country: US (occurrence: US)
  Receive Date: 20240206
  Receipt Date: 20240213
  Transmission Date: 20240409
  Serious: No
  Sender: FDA-Public Use
  Company Number: US-SA-SAC20240131000375

PATIENT
  Age: 19 Year
  Sex: Female

DRUGS (1)
  1. DUPIXENT [Suspect]
     Active Substance: DUPILUMAB
     Indication: Eosinophilic oesophagitis
     Dosage: 300 MG, QOW
     Route: 058
     Dates: start: 20240125

REACTIONS (4)
  - Injection site urticaria [Unknown]
  - Swelling [Unknown]
  - Urticaria [Unknown]
  - Injection site rash [Unknown]

NARRATIVE: CASE EVENT DATE: 20240125
